FAERS Safety Report 9096216 (Version 1)
Quarter: 2013Q1

REPORT INFORMATION
  Report Type: Spontaneous
  Country: US (occurrence: US)
  Receive Date: 20130207
  Receipt Date: 20130207
  Transmission Date: 20140127
  Serious: No
  Sender: FDA-Public Use
  Company Number: US-BAYER-2013-016451

PATIENT
  Age: 88 Year
  Sex: Male
  Weight: 67.57 kg

DRUGS (10)
  1. ALEVE CAPLET/TABLET,MIDOL EXTENDED RELIEF CAPLET [Suspect]
     Indication: ANALGESIC THERAPY
     Dosage: 2 DF, QD
     Route: 048
     Dates: start: 20130127, end: 20130128
  2. METFORMIN [Concomitant]
  3. ISOSORBIDE [ISOSORBIDE] [Concomitant]
  4. PLAVIX [Concomitant]
  5. DOXAZOSIN [Concomitant]
  6. SIMVASTATIN [Concomitant]
  7. GLIMEPIRIDE [Concomitant]
  8. OMEPRAZOLE [Concomitant]
  9. BAYER ASPIRIN [Concomitant]
     Indication: ISCHAEMIC HEART DISEASE PROPHYLAXIS
  10. DICYCLOMINE [Concomitant]

REACTIONS (2)
  - Drug ineffective [None]
  - Expired drug administered [None]
